FAERS Safety Report 15819475 (Version 1)
Quarter: 2019Q1

REPORT INFORMATION
  Report Type: Report from Study
  Country: None (occurrence: US)
  Receive Date: 20190114
  Receipt Date: 20190114
  Transmission Date: 20190417
  Serious: Yes (Hospitalization)
  Sender: FDA-Public Use
  Company Number: US-ABBVIE-18K-163-2608318-00

PATIENT
  Sex: Male

DRUGS (3)
  1. TRAMADOL HCL [Concomitant]
     Active Substance: TRAMADOL HYDROCHLORIDE
     Indication: PRODUCT USED FOR UNKNOWN INDICATION
  2. HUMIRA [Suspect]
     Active Substance: ADALIMUMAB
     Indication: ANKYLOSING SPONDYLITIS
     Route: 058
     Dates: end: 2018
  3. HUMIRA [Suspect]
     Active Substance: ADALIMUMAB
     Route: 058
     Dates: start: 201812

REACTIONS (7)
  - Adhesion [Not Recovered/Not Resolved]
  - Condition aggravated [Unknown]
  - Spinal osteoarthritis [Not Recovered/Not Resolved]
  - Umbilical hernia [Recovering/Resolving]
  - Musculoskeletal stiffness [Unknown]
  - Back pain [Unknown]
  - Arthralgia [Not Recovered/Not Resolved]
